FAERS Safety Report 4592758-6 (Version None)
Quarter: 2005Q1

REPORT INFORMATION
  Report Type: 
  Country: None (occurrence: None)
  Receive Date: 20050218
  Receipt Date: 20050205
  Transmission Date: 20050727
  Serious: Yes (Life-Threatening, Hospitalization, Other)
  Sender: FDA-Public Use
  Company Number: 2004094627

PATIENT
  Age: 56 Year
  Sex: Male

DRUGS (9)
  1. VIAGRA [Suspect]
     Indication: ERECTILE DYSFUNCTION
     Dosage: UNK (UNK, 1 IN 2 WK); ORAL
     Route: 048
     Dates: start: 19980101, end: 20040101
  2. ANTI-DIABETICS [Concomitant]
  3. DIPYRIDAMOLE [Concomitant]
  4. ATORVASTATIN [Concomitant]
  5. AMLODIPINE BESYLATE [Concomitant]
  6. GLIBENCLAMIDE [Concomitant]
  7. DIGOXIN [Concomitant]
  8. ACETYLSALICYLIC ACID [Concomitant]
  9. VOGLIBOSE [Concomitant]

REACTIONS (12)
  - ACUTE MYOCARDIAL INFARCTION [None]
  - ALANINE AMINOTRANSFERASE INCREASED [None]
  - ALCOHOL USE [None]
  - ASPARTATE AMINOTRANSFERASE INCREASED [None]
  - CORONARY ARTERY DISEASE [None]
  - CORONARY ARTERY STENOSIS [None]
  - GLYCOSYLATED HAEMOGLOBIN INCREASED [None]
  - HYPOTENSION [None]
  - RESUSCITATION [None]
  - VENTRICULAR FIBRILLATION [None]
  - VENTRICULAR TACHYCARDIA [None]
  - WHITE BLOOD CELL COUNT INCREASED [None]
